FAERS Safety Report 7121451-0 (Version None)
Quarter: 2010Q4

REPORT INFORMATION
  Report Type: 
  Country: None (occurrence: None)
  Receive Date: 20101124
  Receipt Date: 20101117
  Transmission Date: 20110411
  Serious: Yes (Other)
  Sender: FDA-Public Use
  Company Number: CHPA2010US17838

PATIENT

DRUGS (1)
  1. PREVACID 24 HR [Suspect]
     Dosage: UNK,UNK
     Route: 048

REACTIONS (1)
  - ANAPHYLACTIC SHOCK [None]
